FAERS Safety Report 22082982 (Version 1)
Quarter: 2023Q1

REPORT INFORMATION
  Report Type: Other
  Country: DE (occurrence: None)
  Receive Date: 20230310
  Receipt Date: 20230310
  Transmission Date: 20230417
  Serious: Yes (Hospitalization)
  Sender: FDA-Public Use
  Company Number: DE-ROCHE-3296234

PATIENT
  Age: 29 Year
  Sex: Female
  Weight: 83 kg

DRUGS (4)
  1. OCRELIZUMAB [Suspect]
     Active Substance: OCRELIZUMAB
     Indication: Multiple sclerosis
     Route: 042
     Dates: start: 20200215
  2. INCENSE [Concomitant]
     Indication: Multiple sclerosis
     Route: 048
     Dates: start: 20191015
  3. PROPIONIC ACID [Concomitant]
     Active Substance: PROPIONIC ACID
     Indication: Multiple sclerosis
     Route: 048
     Dates: start: 20200115
  4. FEMIBION [Concomitant]
     Route: 048
     Dates: start: 20220430

REACTIONS (1)
  - COVID-19 [Recovered/Resolved]

NARRATIVE: CASE EVENT DATE: 20230212
